FAERS Safety Report 9069318 (Version 2)
Quarter: 2013Q1

REPORT INFORMATION
  Report Type: Spontaneous
  Country: JP (occurrence: JP)
  Receive Date: 20130215
  Receipt Date: 20130220
  Transmission Date: 20140127
  Serious: Yes (Death, Life-Threatening)
  Sender: FDA-Public Use
  Company Number: JP-ROCHE-1182101

PATIENT
  Age: 55 None
  Sex: Male

DRUGS (6)
  1. DENOSINE [Suspect]
     Indication: CYTOMEGALOVIRUS INFECTION
     Route: 041
  2. DENOSINE [Suspect]
     Route: 041
     Dates: start: 20121225, end: 20130104
  3. ZYVOX [Concomitant]
     Route: 041
     Dates: start: 20121228, end: 20121231
  4. PREDNISONE [Concomitant]
     Route: 041
     Dates: start: 20121201, end: 20130104
  5. GLOVENIN-I [Concomitant]
     Route: 041
     Dates: start: 20121226, end: 20121230
  6. ACICLOVIR [Concomitant]
     Route: 041
     Dates: start: 20121228, end: 20130103

REACTIONS (7)
  - Infection [Fatal]
  - White blood cell count decreased [Fatal]
  - White blood cell count decreased [Unknown]
  - Bone marrow failure [Fatal]
  - Drug hypersensitivity [Fatal]
  - Circulatory collapse [Fatal]
  - Lung infection [Fatal]
